FAERS Safety Report 4780011-7 (Version None)
Quarter: 2005Q3

REPORT INFORMATION
  Report Type: 
  Country: None (occurrence: None)
  Receive Date: 20050914
  Receipt Date: 20050623
  Transmission Date: 20060218
  Serious: Yes (Hospitalization)
  Sender: FDA-Public Use
  Company Number: 163-20785-05060364

PATIENT
  Age: 35 Year
  Sex: Male
  Weight: 68 kg

DRUGS (19)
  1. THALOMID [Suspect]
     Indication: MULTIPLE MYELOMA
     Dosage: ORAL; ORAL; 100 MG, DAILY, ORAL
     Route: 048
     Dates: start: 20050122, end: 20050101
  2. THALOMID [Suspect]
     Indication: MULTIPLE MYELOMA
     Dosage: ORAL; ORAL; 100 MG, DAILY, ORAL
     Route: 048
     Dates: start: 20050301, end: 20050101
  3. THALOMID [Suspect]
     Indication: MULTIPLE MYELOMA
     Dosage: ORAL; ORAL; 100 MG, DAILY, ORAL
     Route: 048
     Dates: start: 20050430
  4. MELPHALAN (MELPHALAN) [Suspect]
     Indication: MULTIPLE MYELOMA
     Dosage: 253 MG, INTRAVENOUS
     Route: 042
     Dates: start: 20050410, end: 20050410
  5. DEXAMETHASONE [Suspect]
     Indication: MULTIPLE MYELOMA
     Dosage: ORAL; ORAL; 20 MG, 4 DAYS EVERY 21 DAYS, ORAL
     Route: 048
     Dates: start: 20050122, end: 20050101
  6. DEXAMETHASONE [Suspect]
     Indication: MULTIPLE MYELOMA
     Dosage: ORAL; ORAL; 20 MG, 4 DAYS EVERY 21 DAYS, ORAL
     Route: 048
     Dates: start: 20050301, end: 20050101
  7. DEXAMETHASONE [Suspect]
     Indication: MULTIPLE MYELOMA
     Dosage: ORAL; ORAL; 20 MG, 4 DAYS EVERY 21 DAYS, ORAL
     Route: 048
     Dates: start: 20050502, end: 20050505
  8. BORTEZOMIB (BORTEZOMIB) [Suspect]
     Indication: MULTIPLE MYELOMA
     Dates: start: 20050122, end: 20050101
  9. BORTEZOMIB (BORTEZOMIB) [Suspect]
     Indication: MULTIPLE MYELOMA
     Dates: start: 20050301
  10. ADRIAMYCIN PFS [Suspect]
     Indication: MULTIPLE MYELOMA
     Dates: start: 20050122, end: 20050101
  11. ADRIAMYCIN PFS [Suspect]
     Indication: MULTIPLE MYELOMA
     Dates: start: 20050301
  12. CYCLOPHOSPHAMIDE [Suspect]
     Indication: MULTIPLE MYELOMA
     Dates: start: 20050122, end: 20050101
  13. CYCLOPHOSPHAMIDE [Suspect]
     Indication: MULTIPLE MYELOMA
     Dates: start: 20050301
  14. ETOPOSIDE [Suspect]
     Indication: MULTIPLE MYELOMA
     Dates: start: 20050122, end: 20050101
  15. ETOPOSIDE [Suspect]
     Indication: MULTIPLE MYELOMA
     Dates: start: 20050301
  16. ACYCLOVIR [Concomitant]
  17. LEVAQUIN [Concomitant]
  18. DIFLUCAN [Concomitant]
  19. OXYCONTIN [Concomitant]

REACTIONS (3)
  - ATELECTASIS [None]
  - NECK PAIN [None]
  - PLEURITIC PAIN [None]
